FAERS Safety Report 10084149 (Version 2)
Quarter: 2014Q2

REPORT INFORMATION
  Report Type: Report from Study
  Country: US (occurrence: US)
  Receive Date: 20140417
  Receipt Date: 20140513
  Transmission Date: 20141212
  Serious: Yes (Hospitalization)
  Sender: FDA-Public Use
  Company Number: US-JNJFOC-20140409966

PATIENT
  Age: 24 Year
  Sex: Female
  Weight: 54.43 kg

DRUGS (11)
  1. SIMPONI [Suspect]
     Indication: COLITIS ULCERATIVE
     Route: 058
     Dates: end: 201403
  2. SIMPONI [Suspect]
     Indication: COLITIS ULCERATIVE
     Route: 058
     Dates: start: 20131215
  3. FOLIC ACID [Concomitant]
     Route: 065
  4. MULTIPLE VITAMIN [Concomitant]
     Route: 065
  5. LIALDA [Concomitant]
     Indication: COLITIS ULCERATIVE
     Dosage: 4 TABLETS
     Route: 065
  6. OMEPRAZOLE [Concomitant]
     Indication: ABDOMINAL DISCOMFORT
     Route: 065
  7. OMEPRAZOLE [Concomitant]
     Indication: COLITIS ULCERATIVE
     Route: 065
  8. ZOFRAN [Concomitant]
     Indication: PROPHYLAXIS OF NAUSEA AND VOMITING
     Route: 065
  9. PHENERGAN [Concomitant]
     Indication: PROPHYLAXIS OF NAUSEA AND VOMITING
     Route: 065
  10. CALCIUM [Concomitant]
     Route: 065
  11. IRON [Concomitant]
     Route: 065

REACTIONS (2)
  - Malaise [Not Recovered/Not Resolved]
  - Drug ineffective [Not Recovered/Not Resolved]
